FAERS Safety Report 7591477-1 (Version None)
Quarter: 2011Q3

REPORT INFORMATION
  Report Type: 
  Country: None (occurrence: None)
  Receive Date: 20110701
  Receipt Date: 20110701
  Transmission Date: 20111222
  Serious: No
  Sender: FDA-Public Use
  Company Number: None

PATIENT
  Age: 35 Year
  Sex: Female
  Weight: 74.3899 kg

DRUGS (10)
  1. ZOMIG [Concomitant]
  2. BENADRYL [Concomitant]
  3. LOVAZA [Concomitant]
  4. FLOVENT [Concomitant]
  5. M.V.I. [Concomitant]
  6. ALBUTEROL SULFATE AUTOHALER [Interacting]
  7. ALESSE [Concomitant]
  8. MINOCYCLINE HCL [Suspect]
     Indication: ACNE
     Dosage: 100 MG DAILY PO
     Route: 048
     Dates: start: 20110610, end: 20110625
  9. IBUPROFEN [Concomitant]
  10. CITALOPRAM [Concomitant]

REACTIONS (5)
  - ERYTHEMA [None]
  - LIP SWELLING [None]
  - ARTHROPOD BITE [None]
  - URTICARIA [None]
  - OEDEMA PERIPHERAL [None]
